FAERS Safety Report 7872314-4 (Version None)
Quarter: 2011Q4

REPORT INFORMATION
  Report Type: 
  Country: None (occurrence: None)
  Receive Date: 20111030
  Receipt Date: 20110317
  Transmission Date: 20120403
  Serious: No
  Sender: FDA-Public Use
  Company Number: US-AMGEN-USASP2011005286

PATIENT
  Age: 44 Year
  Sex: Female

DRUGS (1)
  1. ENBREL [Suspect]
     Indication: PSORIASIS
     Dates: start: 20101001

REACTIONS (4)
  - VISION BLURRED [None]
  - STREPTOCOCCAL INFECTION [None]
  - EYE SWELLING [None]
  - PSORIASIS [None]
